FAERS Safety Report 25976707 (Version 1)
Quarter: 2025Q4

REPORT INFORMATION
  Report Type: Spontaneous
  Country: TW (occurrence: TW)
  Receive Date: 20251029
  Receipt Date: 20251029
  Transmission Date: 20260118
  Serious: Yes (Other)
  Sender: BOEHRINGER INGELHEIM
  Company Number: TW-BoehringerIngelheim-2025-BI-103896

PATIENT
  Age: 67 Year
  Sex: Female

DRUGS (4)
  1. EMPAGLIFLOZIN\METFORMIN HYDROCHLORIDE [Suspect]
     Active Substance: EMPAGLIFLOZIN\METFORMIN HYDROCHLORIDE
     Indication: Diabetes mellitus
     Dosage: 12.5/850MG
     Dates: start: 20250613, end: 20250905
  2. EXFORGE [Concomitant]
     Active Substance: AMLODIPINE BESYLATE\VALSARTAN
     Indication: Hypertension
     Dosage: 160.0MG/6.94MG
     Dates: start: 20250613
  3. SUPERNIDE [Concomitant]
     Indication: Diabetes mellitus
     Dates: start: 20250905
  4. SUPERNIDE [Concomitant]
     Dates: start: 20250613, end: 20250905

REACTIONS (2)
  - Vulvovaginal pruritus [Recovered/Resolved]
  - Pruritus genital [Recovered/Resolved]

NARRATIVE: CASE EVENT DATE: 20250904
